FAERS Safety Report 8805225 (Version 1)
Quarter: 2012Q4

REPORT INFORMATION
  Report Type: 
  Country: CH (occurrence: CH)
  Receive Date: 20120924
  Receipt Date: 20120924
  Transmission Date: 20130627
  Serious: Yes (Hospitalization)
  Sender: FDA-Public Use
  Company Number: CH-009507513-1209CHE008345

PATIENT
  Age: 70 Year
  Sex: Male

DRUGS (19)
  1. JANUVIA [Suspect]
     Indication: TYPE 2 DIABETES MELLITUS
     Dosage: 100 mg, qd
     Route: 048
     Dates: start: 20110310, end: 20120514
  2. SORTIS [Suspect]
     Indication: HYPERCHOLESTEROLAEMIA
     Dosage: 40 mg, qd
     Route: 048
     Dates: start: 2011, end: 20110306
  3. SORTIS [Suspect]
     Dosage: 40 UNK, UNK
     Dates: end: 20120514
  4. NEXIUM [Concomitant]
     Dosage: 40 mg, qd
     Route: 048
  5. AMLODIPINE [Concomitant]
     Dosage: 10 mg, qd
     Route: 048
     Dates: end: 20120514
  6. AMLODIPINE [Concomitant]
     Dosage: 10 mg, qd
     Dates: start: 20120522
  7. ASPIRIN CARDIO [Concomitant]
     Dosage: 100 mg, qd
     Route: 048
  8. STILNOX [Concomitant]
     Dosage: 10 mg, qd
     Route: 048
     Dates: end: 20120514
  9. STILNOX [Concomitant]
     Dosage: 10 UNK, UNK
     Dates: start: 20120522
  10. TRIATEC (RAMIPRIL) [Concomitant]
     Dosage: 1.25 mg, qd
     Route: 048
     Dates: end: 20120514
  11. TRIATEC (RAMIPRIL) [Concomitant]
     Dosage: 1.25 mg, qd
     Dates: start: 20120522
  12. TOREM [Concomitant]
     Dosage: 5 mg, qd
     Route: 048
     Dates: end: 20120514
  13. TOREM [Concomitant]
     Dosage: 5 mg, qd
     Dates: start: 20120522
  14. FOLIC ACID [Concomitant]
     Dosage: 5 mg, qd
     Route: 048
  15. LANTUS [Concomitant]
     Dosage: 36 IU, qd
     Route: 048
  16. BENERVA [Concomitant]
     Dosage: 300 mg, qd
     Route: 048
  17. SERETIDE [Concomitant]
     Dosage: 1 DF, bid
     Route: 055
  18. SPIRIVA [Concomitant]
     Dosage: 1 DF, qd
     Route: 055
  19. VITARUBIN (CYANOCOBALAMIN) [Concomitant]
     Dosage: 100 Microgram, qm
     Route: 030

REACTIONS (2)
  - Rhabdomyolysis [Recovering/Resolving]
  - Renal failure chronic [Recovered/Resolved]
